FAERS Safety Report 12961095 (Version 1)
Quarter: 2016Q4

REPORT INFORMATION
  Report Type: Spontaneous
  Country: US (occurrence: US)
  Receive Date: 20161121
  Receipt Date: 20161121
  Transmission Date: 20170207
  Serious: Yes (Hospitalization)
  Sender: FDA-Public Use
  Company Number: US-MEDA-2016110038

PATIENT
  Age: 30 Year
  Sex: Male
  Weight: 88 kg

DRUGS (2)
  1. ROWASA [Suspect]
     Active Substance: MESALAMINE
     Indication: PROCTITIS
     Route: 054
     Dates: start: 200710, end: 20130905
  2. ROWASA [Concomitant]
     Active Substance: MESALAMINE
     Indication: PROCTITIS
     Dates: start: 2001, end: 2007

REACTIONS (4)
  - Product physical consistency issue [Unknown]
  - Intestinal perforation [Recovered/Resolved]
  - Malaise [Not Recovered/Not Resolved]
  - Drug ineffective [Not Recovered/Not Resolved]

NARRATIVE: CASE EVENT DATE: 200710
